FAERS Safety Report 4633082-2 (Version None)
Quarter: 2005Q2

REPORT INFORMATION
  Report Type: 
  Country: None (occurrence: None)
  Receive Date: 20050411
  Receipt Date: 20050411
  Transmission Date: 20051028
  Serious: Yes (Hospitalization)
  Sender: FDA-Public Use
  Company Number: None

PATIENT
  Age: 40 Year
  Sex: Male
  Weight: 100 kg

DRUGS (10)
  1. FLUOROURACIL [Suspect]
     Indication: ANAL CANCER
     Dates: start: 20030609, end: 20030707
  2. MITOMYCIN [Suspect]
     Dates: start: 20030609, end: 20030707
  3. DOCUSATE SODIUM [Concomitant]
  4. TAMSULOSIN [Concomitant]
  5. MORPHINE [Concomitant]
  6. IBUPROFEN [Concomitant]
  7. VICODIN [Concomitant]
  8. AMOXICILLIN [Concomitant]
  9. FLAGYL [Concomitant]
  10. METRONIDAZOLE [Concomitant]

REACTIONS (6)
  - ANORECTAL DISORDER [None]
  - OBSTRUCTION [None]
  - ORCHITIS [None]
  - PAIN [None]
  - PERIRECTAL ABSCESS [None]
  - REFUSAL OF TREATMENT BY PATIENT [None]
